FAERS Safety Report 7233387-5 (Version None)
Quarter: 2011Q1

REPORT INFORMATION
  Report Type: 
  Country: None (occurrence: None)
  Receive Date: 20110119
  Receipt Date: 20110112
  Transmission Date: 20110831
  Serious: Yes (Other)
  Sender: FDA-Public Use
  Company Number: FR-ROCHE-753343

PATIENT
  Sex: Male

DRUGS (6)
  1. METHOTREXATE [Suspect]
     Indication: RHEUMATOID ARTHRITIS
     Route: 048
     Dates: end: 20101208
  2. CACIT D3 [Concomitant]
     Dosage: LONG TERM TREATMENT
  3. CORTANCYL [Concomitant]
     Dosage: LONG TERM TREATMENT
  4. FOSAMAX [Concomitant]
     Dosage: LONG TERM TREATMENT
  5. ACETAMINOPHEN [Concomitant]
     Dosage: LONG TERM TREATMENT
  6. ROACTEMRA [Suspect]
     Indication: RHEUMATOID ARTHRITIS
     Route: 042
     Dates: start: 20100928, end: 20101025

REACTIONS (2)
  - AGRANULOCYTOSIS [None]
  - LEUKOPENIA [None]
